FAERS Safety Report 5898815-6 (Version None)
Quarter: 2008Q3

REPORT INFORMATION
  Report Type: 
  Country: None (occurrence: None)
  Receive Date: 20080925
  Receipt Date: 20080814
  Transmission Date: 20090109
  Serious: No
  Sender: FDA-Public Use
  Company Number: A0736463A

PATIENT
  Age: 66 Year
  Sex: Female

DRUGS (4)
  1. WELLBUTRIN XL [Suspect]
     Indication: DEPRESSION
     Dosage: 150MG PER DAY
     Route: 048
     Dates: start: 20080701
  2. PAXIL CR [Suspect]
     Indication: DEPRESSION
     Route: 048
     Dates: start: 20080712
  3. SYNTHROID [Concomitant]
  4. VITAMIN TAB [Concomitant]

REACTIONS (5)
  - ANOREXIA [None]
  - ANXIETY [None]
  - EXTRASYSTOLES [None]
  - FATIGUE [None]
  - YAWNING [None]
